FAERS Safety Report 14006701 (Version 2)
Quarter: 2017Q4

REPORT INFORMATION
  Report Type: Spontaneous
  Country: US (occurrence: US)
  Receive Date: 20170925
  Receipt Date: 20171027
  Transmission Date: 20180321
  Serious: No
  Sender: FDA-Public Use
  Company Number: US-ASTRAZENECA-2015SE40772

PATIENT
  Age: 29525 Day
  Sex: Female

DRUGS (2)
  1. BYDUREON [Suspect]
     Active Substance: EXENATIDE
     Indication: TYPE 2 DIABETES MELLITUS
     Route: 065
     Dates: start: 20170903
  2. BYDUREON [Suspect]
     Active Substance: EXENATIDE
     Indication: TYPE 2 DIABETES MELLITUS
     Route: 065

REACTIONS (7)
  - Injection site pain [Unknown]
  - Product quality issue [Unknown]
  - Injection site haemorrhage [Unknown]
  - Injection site nodule [Unknown]
  - Wrong technique in product usage process [Unknown]
  - Blood glucose increased [Unknown]
  - Product use complaint [Unknown]

NARRATIVE: CASE EVENT DATE: 20170903
